FAERS Safety Report 5704793-2 (Version None)
Quarter: 2008Q2

REPORT INFORMATION
  Report Type: 
  Country: None (occurrence: None)
  Receive Date: 20080414
  Receipt Date: 20080402
  Transmission Date: 20081010
  Serious: Yes (Other)
  Sender: FDA-Public Use
  Company Number: FR-PFIZER INC-2008017119

PATIENT
  Sex: Female
  Weight: 53 kg

DRUGS (1)
  1. CHAMPIX [Suspect]
     Indication: SMOKING CESSATION THERAPY
     Route: 048
     Dates: start: 20071205, end: 20080205

REACTIONS (4)
  - AFFECTIVE DISORDER [None]
  - DEPRESSION [None]
  - DISSOCIATIVE IDENTITY DISORDER [None]
  - SUICIDAL IDEATION [None]
